FAERS Safety Report 17961257 (Version 1)
Quarter: 2020Q2

REPORT INFORMATION
  Report Type: Spontaneous
  Country: US (occurrence: US)
  Receive Date: 20200629
  Receipt Date: 20200629
  Transmission Date: 20200714
  Serious: No
  Sender: FDA-Public Use
  Company Number: None

PATIENT
  Age: 65 Year
  Sex: Male
  Weight: 86.18 kg

DRUGS (1)
  1. LITHIUM (LITHIUM CARBONATE 300MG CAP) [Suspect]
     Active Substance: LITHIUM CARBONATE
     Indication: BIPOLAR I DISORDER
     Dosage: OTHER
     Route: 048
     Dates: start: 20181030, end: 20191029

REACTIONS (3)
  - Parkinsonism [None]
  - Hyperkalaemia [None]
  - Diarrhoea [None]

NARRATIVE: CASE EVENT DATE: 20190919
